FAERS Safety Report 5101001-0 (Version None)
Quarter: 2006Q3

REPORT INFORMATION
  Report Type: 
  Country: None (occurrence: None)
  Receive Date: 20060911
  Receipt Date: 20060515
  Transmission Date: 20061208
  Serious: Yes (Other)
  Sender: FDA-Public Use
  Company Number: US-BRISTOL-MYERS SQUIBB COMPANY-13378112

PATIENT
  Age: 71 Year
  Sex: Female

DRUGS (1)
  1. PRAVACHOL [Suspect]
     Dates: start: 20051222

REACTIONS (3)
  - EATING DISORDER [None]
  - JOINT STIFFNESS [None]
  - LOSS OF CONSCIOUSNESS [None]
